FAERS Safety Report 21035410 (Version 4)
Quarter: 2022Q3

REPORT INFORMATION
  Report Type: Spontaneous
  Country: US (occurrence: US)
  Receive Date: 20220701
  Receipt Date: 20220921
  Transmission Date: 20221026
  Serious: Yes (Hospitalization)
  Sender: FDA-Public Use
  Company Number: US-KARYOPHARM-2022KPT000710

PATIENT

DRUGS (3)
  1. XPOVIO [Suspect]
     Active Substance: SELINEXOR
     Indication: Plasma cell myeloma
     Dosage: 60 MG, WEEKLY, 3 WEEKS ON AND 1 WEEK OFF
     Route: 048
     Dates: start: 20220520
  2. XPOVIO [Suspect]
     Active Substance: SELINEXOR
     Dosage: 60 MG, WEEKLY, 3 WEEKS ON AND 1 WEEK OFF
     Route: 048
     Dates: start: 20220621, end: 20220823
  3. OXYCODONE HYDROCHLORIDE [Concomitant]
     Active Substance: OXYCODONE HYDROCHLORIDE
     Indication: Pain

REACTIONS (13)
  - COVID-19 [Recovered/Resolved]
  - Balance disorder [Unknown]
  - White blood cell count decreased [Unknown]
  - Back pain [Unknown]
  - Plasma cell myeloma [Unknown]
  - Muscular weakness [Unknown]
  - Urinary retention [Unknown]
  - Incontinence [Unknown]
  - Sensory loss [Unknown]
  - Pain in extremity [Unknown]
  - Nausea [Not Recovered/Not Resolved]
  - Platelet count decreased [Unknown]
  - Product dose omission issue [Unknown]

NARRATIVE: CASE EVENT DATE: 20220101
